FAERS Safety Report 16416742 (Version 4)
Quarter: 2022Q2

REPORT INFORMATION
  Report Type: Spontaneous
  Country: IT (occurrence: None)
  Receive Date: 20190611
  Receipt Date: 20220415
  Transmission Date: 20220721
  Serious: Yes (Hospitalization)
  Sender: FDA-Public Use
  Company Number: 2019SE82543

PATIENT
  Age: 64 Year
  Sex: Female

DRUGS (14)
  1. OMEPRAZOLE [Suspect]
     Active Substance: OMEPRAZOLE
     Indication: Gastritis prophylaxis
     Route: 065
     Dates: start: 201501
  2. RITUXIMAB [Suspect]
     Active Substance: RITUXIMAB
     Indication: Follicular lymphoma
     Dosage: 375.0MG EVERY CYCLE
     Route: 042
     Dates: start: 20171012, end: 20171012
  3. ENTECAVIR [Suspect]
     Active Substance: ENTECAVIR
     Indication: Hepatitis B virus test positive
     Route: 065
     Dates: start: 201303
  4. AVADOMIDE [Suspect]
     Active Substance: AVADOMIDE
     Indication: Follicular lymphoma
     Dosage: CYCLE 1 MONDAY-FRIDAY
     Route: 048
     Dates: start: 20171005, end: 20171102
  5. NADROPARIN CALCIUM [Concomitant]
     Active Substance: NADROPARIN CALCIUM
     Indication: Thrombosis prophylaxis
     Dosage: 5700 IU DAILY
     Route: 058
     Dates: start: 20171005
  6. NADROPARIN CALCIUM [Concomitant]
     Active Substance: NADROPARIN CALCIUM
     Indication: Thrombosis prophylaxis
     Dosage: 5700 IU DAILY
     Route: 058
     Dates: start: 20171005
  7. CHOLECALCIFEROL [Concomitant]
     Active Substance: CHOLECALCIFEROL
     Indication: Osteopenia
     Dosage: 35 DROPS
     Route: 048
     Dates: start: 2015
  8. TAVOR [Concomitant]
     Indication: Insomnia
  9. TAVOR [Concomitant]
     Indication: Insomnia
     Dosage: LORAZEPAM, 1 MG DAILY
     Route: 048
     Dates: start: 20190124
  10. OMEPRAZOLE [Concomitant]
     Active Substance: OMEPRAZOLE
     Indication: Gastrooesophageal reflux disease
     Dosage: 20.0MG UNKNOWN
     Route: 048
  11. FILGRASTIM [Concomitant]
     Active Substance: FILGRASTIM
     Indication: Prophylaxis
     Dosage: 30 MU ONCE A WEEK
     Route: 065
     Dates: start: 201804
  12. ACYCLOVIR [Concomitant]
     Active Substance: ACYCLOVIR
     Indication: Cytomegalovirus chorioretinitis
     Route: 048
  13. BACTRIM [Concomitant]
     Active Substance: SULFAMETHOXAZOLE\TRIMETHOPRIM
     Indication: Antifungal prophylaxis
     Dosage: 960.0MG UNKNOWN
     Route: 048
     Dates: start: 20171005
  14. MOVICOL [Concomitant]
     Active Substance: POLYETHYLENE GLYCOL 3350\POTASSIUM CHLORIDE\SODIUM BICARBONATE\SODIUM CHLORIDE
     Indication: Constipation
     Dosage: INTERMITTENT
     Route: 048
     Dates: start: 20180906

REACTIONS (1)
  - Viral uveitis [Not Recovered/Not Resolved]

NARRATIVE: CASE EVENT DATE: 20190318
